FAERS Safety Report 15317430 (Version 2)
Quarter: 2019Q2

REPORT INFORMATION
  Report Type: Spontaneous
  Country: US (occurrence: US)
  Receive Date: 20180824
  Receipt Date: 20190513
  Transmission Date: 20190711
  Serious: Yes (Hospitalization, Other)
  Sender: FDA-Public Use
  Company Number: US-ASTRAZENECA-2018SF05777

PATIENT
  Sex: Male
  Weight: 116.1 kg

DRUGS (14)
  1. NEXIUM [Suspect]
     Active Substance: ESOMEPRAZOLE MAGNESIUM
     Indication: GASTROOESOPHAGEAL REFLUX DISEASE
     Route: 048
     Dates: start: 2007, end: 2015
  2. NEXIUM [Suspect]
     Active Substance: ESOMEPRAZOLE MAGNESIUM
     Indication: GASTROOESOPHAGEAL REFLUX DISEASE
     Route: 048
     Dates: start: 2007, end: 2015
  3. VITAMIN D [Concomitant]
     Active Substance: VITAMIN D NOS
  4. AMOXICILLIN. [Concomitant]
     Active Substance: AMOXICILLIN
  5. ASPIRIN. [Concomitant]
     Active Substance: ASPIRIN
  6. OMEPRAZOLE. [Suspect]
     Active Substance: OMEPRAZOLE
     Indication: GASTROOESOPHAGEAL REFLUX DISEASE
     Route: 065
  7. IBUPROFEN. [Concomitant]
     Active Substance: IBUPROFEN
     Indication: PAIN
  8. TRICOR [Concomitant]
     Active Substance: FENOFIBRATE
  9. LIPITOR [Concomitant]
     Active Substance: ATORVASTATIN CALCIUM
     Indication: BLOOD CHOLESTEROL INCREASED
  10. VITAMIN C [Concomitant]
     Active Substance: ASCORBIC ACID
  11. FAMOTIDINE. [Concomitant]
     Active Substance: FAMOTIDINE
  12. TUMS [Concomitant]
     Active Substance: CALCIUM CARBONATE
  13. SOTALOL. [Concomitant]
     Active Substance: SOTALOL
  14. METFORMIN [Concomitant]
     Active Substance: METFORMIN HYDROCHLORIDE
     Indication: DIABETES MELLITUS

REACTIONS (5)
  - Tubulointerstitial nephritis [Unknown]
  - Hyperparathyroidism secondary [Unknown]
  - Chronic kidney disease [Not Recovered/Not Resolved]
  - Acute kidney injury [Not Recovered/Not Resolved]
  - Nephrogenic anaemia [Unknown]
